FAERS Safety Report 6769693-8 (Version None)
Quarter: 2010Q2

REPORT INFORMATION
  Report Type: 
  Country: None (occurrence: None)
  Receive Date: 20100615
  Receipt Date: 20100608
  Transmission Date: 20101027
  Serious: Yes (Hospitalization, Other)
  Sender: FDA-Public Use
  Company Number: BR-ROCHE-684198

PATIENT
  Sex: Female
  Weight: 75 kg

DRUGS (4)
  1. PEGASYS [Suspect]
     Route: 058
     Dates: start: 20070101, end: 20080101
  2. PEGASYS [Suspect]
     Route: 058
     Dates: start: 20091001, end: 20100101
  3. RIBAVIRIN [Suspect]
     Indication: DRUG USE FOR UNKNOWN INDICATION
     Dosage: 4 TABLETS DAILY
     Route: 065
  4. PREDNISONE [Concomitant]
     Dates: start: 20020101

REACTIONS (24)
  - ALOPECIA [None]
  - ANAEMIA [None]
  - BIPOLAR DISORDER [None]
  - BONE PAIN [None]
  - CERVICAL DYSPLASIA [None]
  - DECREASED APPETITE [None]
  - DEPRESSION [None]
  - DRUG INEFFECTIVE [None]
  - EAR HAEMORRHAGE [None]
  - EPISTAXIS [None]
  - EYE DISCHARGE [None]
  - GENERALISED OEDEMA [None]
  - INSOMNIA [None]
  - LYMPHADENECTOMY [None]
  - MOUTH HAEMORRHAGE [None]
  - MUSCLE RIGIDITY [None]
  - MYALGIA [None]
  - NUCHAL RIGIDITY [None]
  - OCULAR HYPERAEMIA [None]
  - OVARIAN CYST [None]
  - PYREXIA [None]
  - RETCHING [None]
  - VOMITING [None]
  - WEIGHT INCREASED [None]
